FAERS Safety Report 21071765 (Version 5)
Quarter: 2022Q3

REPORT INFORMATION
  Report Type: Spontaneous
  Country: US (occurrence: US)
  Receive Date: 20220712
  Receipt Date: 20220916
  Transmission Date: 20221027
  Serious: No
  Sender: FDA-Public Use
  Company Number: US-PFIZER INC-PV202200020859

PATIENT
  Age: 56 Year
  Sex: Female

DRUGS (1)
  1. IBRANCE [Suspect]
     Active Substance: PALBOCICLIB
     Indication: Breast cancer
     Dosage: 125 MG
     Dates: start: 20220708, end: 20220914

REACTIONS (4)
  - Burning sensation [Unknown]
  - Neoplasm progression [Not Recovered/Not Resolved]
  - Pain [Unknown]
  - Fatigue [Unknown]
